FAERS Safety Report 8095482-0 (Version None)
Quarter: 2012Q1

REPORT INFORMATION
  Report Type: 
  Country: None (occurrence: None)
  Receive Date: 20120129
  Receipt Date: 20111216
  Transmission Date: 20120608
  Serious: No
  Sender: FDA-Public Use
  Company Number: US-ABBOTT-11P-163-0884330-00

PATIENT
  Age: 22 Year
  Sex: Male

DRUGS (2)
  1. CONCERTA [Concomitant]
     Indication: ATTENTION DEFICIT/HYPERACTIVITY DISORDER
  2. HUMIRA [Suspect]
     Indication: CROHN'S DISEASE
     Dates: start: 20110917

REACTIONS (5)
  - INJECTION SITE ERYTHEMA [None]
  - INJECTION SITE PAIN [None]
  - INJECTION SITE SWELLING [None]
  - INJECTION SITE PRURITUS [None]
  - INJECTION SITE REACTION [None]
